FAERS Safety Report 10024309 (Version 1)
Quarter: 2014Q1

REPORT INFORMATION
  Report Type: Spontaneous
  Country: FR (occurrence: FR)
  Receive Date: 20140320
  Receipt Date: 20140320
  Transmission Date: 20141002
  Serious: Yes (Other)
  Sender: FDA-Public Use
  Company Number: FR-009507513-1403FRA005595

PATIENT
  Age: 82 Year
  Sex: Female
  Weight: 48 kg

DRUGS (6)
  1. SINGULAIR [Suspect]
     Indication: ASTHMA
     Dosage: 1 DF, QD
     Route: 048
     Dates: start: 2005
  2. OROCAL D3 [Concomitant]
     Dosage: UNK, QD
     Route: 048
     Dates: start: 1998
  3. SYMBICORT [Concomitant]
     Dosage: UNK UNK, QD
     Dates: start: 2004
  4. SPIRIVA [Concomitant]
     Dosage: UNK
     Dates: start: 2007, end: 201102
  5. ACTONEL [Concomitant]
     Dosage: UNK
     Dates: start: 1998, end: 2008
  6. ACTONEL [Concomitant]
     Dosage: UNK
     Dates: start: 1998, end: 2008

REACTIONS (6)
  - Cerebrovascular accident [Unknown]
  - Cerebrovascular accident [Unknown]
  - Fracture [Unknown]
  - Clavicle fracture [Unknown]
  - Pelvic fracture [Unknown]
  - Upper limb fracture [Unknown]
